FAERS Safety Report 4759776-6 (Version None)
Quarter: 2005Q3

REPORT INFORMATION
  Report Type: 
  Country: None (occurrence: None)
  Receive Date: 20050829
  Receipt Date: 20050510
  Transmission Date: 20060218
  Serious: No
  Sender: FDA-Public Use
  Company Number: S05-USA-02567-01

PATIENT
  Sex: Male

DRUGS (4)
  1. CAMPRAL [Suspect]
  2. NALTREXONE [Concomitant]
  3. ABILIFY [Concomitant]
  4. PRINIVIL [Concomitant]

REACTIONS (1)
  - ERECTILE DYSFUNCTION [None]
